FAERS Safety Report 9014731 (Version 1)
Quarter: 2013Q1

REPORT INFORMATION
  Report Type: Spontaneous
  Country: US (occurrence: US)
  Receive Date: 20130115
  Receipt Date: 20130115
  Transmission Date: 20140127
  Serious: Yes (Hospitalization, Other)
  Sender: FDA-Public Use
  Company Number: US-PFIZER INC-2013004700

PATIENT
  Age: 90 Year
  Sex: Female

DRUGS (3)
  1. XALATAN [Suspect]
     Indication: GLAUCOMA
     Dosage: UNK
  2. LATANOPROST [Suspect]
     Indication: GLAUCOMA
     Dosage: UNK
  3. BRIMONIDINE [Suspect]
     Indication: GLAUCOMA
     Dosage: UNK

REACTIONS (8)
  - Haemorrhage [Not Recovered/Not Resolved]
  - Extravasation [Unknown]
  - Dyspnoea [Not Recovered/Not Resolved]
  - Gastrointestinal tract irritation [Not Recovered/Not Resolved]
  - Respiratory tract inflammation [Unknown]
  - Insomnia [Unknown]
  - Dyspepsia [Unknown]
  - Gastritis [Not Recovered/Not Resolved]
